FAERS Safety Report 10583627 (Version 2)
Quarter: 2014Q4

REPORT INFORMATION
  Report Type: Spontaneous
  Country: CN (occurrence: CN)
  Receive Date: 20141114
  Receipt Date: 20141127
  Transmission Date: 20150529
  Serious: Yes (Hospitalization, Other)
  Sender: FDA-Public Use
  Company Number: PHHY2014CN145437

PATIENT
  Age: 84 Year
  Sex: Female

DRUGS (3)
  1. TEGRETOL [Suspect]
     Active Substance: CARBAMAZEPINE
     Indication: PSYCHOTIC DISORDER
     Dosage: (MAY BE 1 TO 2 TIMES EVERY WEEK)
     Route: 065
     Dates: start: 2012, end: 201410
  2. TEGRETOL [Suspect]
     Active Substance: CARBAMAZEPINE
     Indication: SEDATION
  3. TEGRETOL [Suspect]
     Active Substance: CARBAMAZEPINE
     Indication: TRIGEMINAL NEURALGIA

REACTIONS (3)
  - Coma [Recovered/Resolved]
  - Pulmonary embolism [Recovered/Resolved]
  - Abdominal pain [Unknown]

NARRATIVE: CASE EVENT DATE: 20141020
